FAERS Safety Report 24557948 (Version 1)
Quarter: 2024Q4

REPORT INFORMATION
  Report Type: Spontaneous
  Country: MK (occurrence: MK)
  Receive Date: 20241028
  Receipt Date: 20241028
  Transmission Date: 20250115
  Serious: Yes (Other)
  Sender: RANBAXY
  Company Number: MK-SUN PHARMACEUTICAL INDUSTRIES LTD-2024R1-469573

PATIENT

DRUGS (4)
  1. METHOTREXATE [Suspect]
     Active Substance: METHOTREXATE
     Indication: Ankylosing spondylitis
     Dosage: 25 MILLIGRAM, WEEKLY
     Route: 065
  2. SULFASALAZINE [Suspect]
     Active Substance: SULFASALAZINE
     Indication: Ankylosing spondylitis
     Dosage: 2 GRAM, DAILY
     Route: 065
  3. ARCOXIA [Suspect]
     Active Substance: ETORICOXIB
     Indication: Ankylosing spondylitis
     Dosage: UNK (90 MG 1 X 1)
     Route: 065
  4. ERGOCALCIFEROL [Suspect]
     Active Substance: ERGOCALCIFEROL
     Indication: Ankylosing spondylitis
     Dosage: 2000 INTERNATIONAL UNIT, DAILY
     Route: 065

REACTIONS (1)
  - Condition aggravated [Unknown]
